FAERS Safety Report 9111286 (Version 1)
Quarter: 2013Q1

REPORT INFORMATION
  Report Type: Spontaneous
  Country: US (occurrence: US)
  Receive Date: 20130219
  Receipt Date: 20130219
  Transmission Date: 20140127
  Serious: No
  Sender: FDA-Public Use
  Company Number: US-BRISTOL-MYERS SQUIBB COMPANY-16955213

PATIENT
  Age: 61 Year
  Sex: Female
  Weight: 74.83 kg

DRUGS (7)
  1. ORENCIA [Suspect]
     Indication: RHEUMATOID ARTHRITIS
     Dosage: FIRST INF
     Route: 042
  2. METHOTREXATE [Concomitant]
  3. SYNTHROID [Concomitant]
  4. METOPROLOL [Concomitant]
  5. DEXLANSOPRAZOLE [Concomitant]
     Indication: GASTROOESOPHAGEAL REFLUX DISEASE
     Dosage: DEXILANT
  6. ESTRATEST [Concomitant]
     Dosage: 1 DF: 0.625MG/1.25MG
  7. IBUPROFEN [Concomitant]
     Dosage: OTC

REACTIONS (2)
  - Pruritus [Recovered/Resolved]
  - Chest discomfort [Recovered/Resolved]
